FAERS Safety Report 14458026 (Version 11)
Quarter: 2018Q2

REPORT INFORMATION
  Report Type: Spontaneous
  Country: IT (occurrence: IT)
  Receive Date: 20180130
  Receipt Date: 20180416
  Transmission Date: 20180711
  Serious: Yes (Life-Threatening, Other)
  Sender: FDA-Public Use
  Company Number: IT-PFIZER INC-2018036798

PATIENT
  Age: 65 Year
  Sex: Male

DRUGS (6)
  1. HAWTHORN [Concomitant]
     Active Substance: CRATAEGUS LAEVIGATA FRUIT
     Dosage: UNK
  2. RAMIPRIL. [Suspect]
     Active Substance: RAMIPRIL
     Indication: HYPERTENSION
     Dosage: UNK
     Route: 048
     Dates: start: 2010
  3. OLEA EUROPAEA LEAF EXTRACT [Concomitant]
     Active Substance: HERBALS
     Dosage: UNK
  4. DOXAZOSIN MESILATE [Suspect]
     Active Substance: DOXAZOSIN MESYLATE
     Indication: HYPERTENSION
     Dosage: UNK
     Route: 048
     Dates: start: 2010
  5. HYDROCHLOROTHIAZIDE/RAMIPRIL [Suspect]
     Active Substance: HYDROCHLOROTHIAZIDE\RAMIPRIL
     Indication: HYPERTENSION
     Dosage: UNK
     Route: 048
     Dates: start: 2011
  6. CARVEDILOL. [Suspect]
     Active Substance: CARVEDILOL
     Indication: HYPERTENSION
     Dosage: UNK
     Route: 048
     Dates: start: 2010

REACTIONS (18)
  - Angioedema [Recovering/Resolving]
  - Oesophageal disorder [Recovering/Resolving]
  - Somnolence [Recovering/Resolving]
  - Orthostatic hypotension [Recovering/Resolving]
  - Abdominal distension [Recovering/Resolving]
  - Gastric disorder [Recovering/Resolving]
  - Dyspnoea [Recovering/Resolving]
  - Respiratory disorder [Unknown]
  - Salivary hypersecretion [Recovering/Resolving]
  - Oedema peripheral [Recovering/Resolving]
  - Somnolence [Unknown]
  - Abdominal distension [Recovering/Resolving]
  - Mouth breathing [Recovering/Resolving]
  - Asthma [Recovering/Resolving]
  - Abdominal discomfort [Unknown]
  - Bronchial disorder [Recovering/Resolving]
  - Cough [Recovering/Resolving]
  - Speech disorder [Recovering/Resolving]

NARRATIVE: CASE EVENT DATE: 2017
